FAERS Safety Report 8604615-6 (Version None)
Quarter: 2012Q3

REPORT INFORMATION
  Report Type: 
  Country: None (occurrence: None)
  Receive Date: 20120820
  Receipt Date: 20120807
  Transmission Date: 20120928
  Serious: Yes (Other)
  Sender: FDA-Public Use
  Company Number: PHHY2010BR16864

PATIENT
  Sex: Male
  Weight: 76 kg

DRUGS (13)
  1. WELLBUTRIN XL [Concomitant]
     Indication: ANXIETY
     Dosage: 1 DF, PER DAY
     Route: 048
     Dates: start: 20120601
  2. DIOVAN [Suspect]
     Dosage: 320 MG, TABLET SPLIT IN HALF, BID
  3. DIOVAN [Suspect]
     Dosage: 320 MG, UNK
  4. DIOVAN [Suspect]
     Indication: HYPERTENSION
     Dosage: 1 DF, PER DAY
     Route: 048
     Dates: start: 20060101
  5. ADALAT [Concomitant]
     Indication: BLOOD PRESSURE
     Dosage: 1 DF, PER DAY
     Route: 048
     Dates: start: 20060101
  6. CAPTOPRIL [Concomitant]
     Indication: BLOOD PRESSURE
     Dosage: 1 DF, UNK
     Route: 048
     Dates: start: 20060101
  7. MICARDIS [Concomitant]
  8. GINKGO BILOBA [Concomitant]
     Indication: BLOOD DISORDER
     Dosage: 2 DF, PER DAY
     Route: 048
     Dates: start: 20120601
  9. UNOPROST [Concomitant]
     Indication: PROSTATOMEGALY
     Dosage: 1 TABLET (2 MG) DAILY
     Route: 048
     Dates: start: 20090901
  10. CLONIDINE HYDROCHLORIDE [Concomitant]
     Indication: BLOOD PRESSURE
     Dosage: 100 UG, (4 OR 5 TIMES A DAY)
     Dates: start: 20100101
  11. DAFLON (DIOSMIN) [Concomitant]
     Indication: CONTUSION
     Dosage: 2 DF, A DAY
     Route: 048
     Dates: start: 20120501
  12. ADALAT [Concomitant]
     Dosage: 0.5 TABLET (30 MG) AT NIGHT
     Route: 048
     Dates: end: 20100217
  13. EXELON [Suspect]
     Indication: MEMORY IMPAIRMENT
     Dosage: 1 DF, PER DAY
     Route: 048
     Dates: start: 20090601

REACTIONS (9)
  - HEART RATE IRREGULAR [None]
  - OEDEMA PERIPHERAL [None]
  - WRONG TECHNIQUE IN DRUG USAGE PROCESS [None]
  - BENIGN PROSTATIC HYPERPLASIA [None]
  - HEADACHE [None]
  - OEDEMA [None]
  - BLOOD PRESSURE INADEQUATELY CONTROLLED [None]
  - BRADYCARDIA [None]
  - HYPOTENSION [None]
